FAERS Safety Report 15973820 (Version 1)
Quarter: 2019Q1

REPORT INFORMATION
  Report Type: Spontaneous
  Country: US (occurrence: US)
  Receive Date: 20190217
  Receipt Date: 20190217
  Transmission Date: 20190418
  Serious: Yes (Other)
  Sender: FDA-Public Use
  Company Number: US-ASTRAZENECA-2019SE10675

PATIENT
  Age: 21503 Day
  Sex: Female
  Weight: 145.2 kg

DRUGS (11)
  1. PRILOSEC [Suspect]
     Active Substance: OMEPRAZOLE MAGNESIUM
     Route: 048
  2. AMIODARONE [Concomitant]
     Active Substance: AMIODARONE
  3. ISOSORBIDE. [Concomitant]
     Active Substance: ISOSORBIDE
  4. LISINOPRIL. [Concomitant]
     Active Substance: LISINOPRIL
  5. ALDACTONE [Concomitant]
     Active Substance: SPIRONOLACTONE
  6. HYDRALAZINE [Concomitant]
     Active Substance: HYDRALAZINE HYDROCHLORIDE
  7. METFORMIN [Concomitant]
     Active Substance: METFORMIN HYDROCHLORIDE
  8. NEXIUM [Suspect]
     Active Substance: ESOMEPRAZOLE MAGNESIUM
     Route: 048
  9. NOVOLIN [Concomitant]
     Active Substance: INSULIN HUMAN
  10. ZOCOR [Concomitant]
     Active Substance: SIMVASTATIN
  11. FUROSEMIDE. [Concomitant]
     Active Substance: FUROSEMIDE

REACTIONS (1)
  - Chronic kidney disease [Unknown]

NARRATIVE: CASE EVENT DATE: 20110808
